FAERS Safety Report 14277551 (Version 1)
Quarter: 2017Q4

REPORT INFORMATION
  Report Type: Spontaneous
  Country: US (occurrence: US)
  Receive Date: 20171211
  Receipt Date: 20171211
  Transmission Date: 20180321
  Serious: Yes (Other)
  Sender: FDA-Public Use
  Company Number: US-OTSUKA-2016_020904

PATIENT
  Age: 59 Year
  Sex: Female

DRUGS (2)
  1. ABILIFY [Suspect]
     Active Substance: ARIPIPRAZOLE
     Indication: BIPOLAR DISORDER
     Dosage: 10 MG, BID (1 DF= 10 MG, 2 IN THE AM AND 2 IN THE PM)
     Route: 065
     Dates: end: 201608
  2. ABILIFY [Suspect]
     Active Substance: ARIPIPRAZOLE
     Indication: SCHIZOPHRENIA
     Dosage: 2 MG, UNK (1 DF= 10 MG, 2 IN THE AM AND 2 IN THE PM)
     Route: 065
     Dates: end: 201608

REACTIONS (6)
  - Off label use [Unknown]
  - Delusion [Unknown]
  - Nervousness [Unknown]
  - Diabetes mellitus [Not Recovered/Not Resolved]
  - Prescribed underdose [Unknown]
  - Paranoia [Unknown]
